FAERS Safety Report 13760246 (Version 1)
Quarter: 2017Q3

REPORT INFORMATION
  Report Type: Spontaneous
  Country: ES (occurrence: ES)
  Receive Date: 20170717
  Receipt Date: 20170717
  Transmission Date: 20171127
  Serious: Yes (Other)
  Sender: FDA-Public Use
  Company Number: ES-PFM-2017-05941

PATIENT

DRUGS (1)
  1. HEMANGIOL [Suspect]
     Active Substance: PROPRANOLOL HYDROCHLORIDE
     Indication: EYELID HAEMANGIOMA
     Dosage: PROPRANOLOL ORAL
     Route: 048
     Dates: start: 20170615, end: 20170627

REACTIONS (5)
  - Respiratory distress [Recovered/Resolved]
  - Bronchospasm [Recovered/Resolved]
  - Vomiting [Recovered/Resolved]
  - Increased bronchial secretion [Recovered/Resolved]
  - Tachypnoea [Recovered/Resolved]

NARRATIVE: CASE EVENT DATE: 20170627
